FAERS Safety Report 6177456-X (Version None)
Quarter: 2009Q2

REPORT INFORMATION
  Report Type: 
  Country: None (occurrence: None)
  Receive Date: 20090501
  Receipt Date: 20090501
  Transmission Date: 20091009
  Serious: Yes (Hospitalization)
  Sender: FDA-Public Use
  Company Number: None

PATIENT
  Age: 68 Year
  Sex: Male

DRUGS (14)
  1. MORPHINE SULFATE [Suspect]
     Indication: PAIN
     Dosage: 15MG PO BID
     Route: 048
  2. OXYCODONE HCL [Suspect]
     Indication: PAIN
     Dosage: 5MG PO Q4 PRN
     Route: 048
  3. ASPIRIN [Concomitant]
  4. AUGMENTIN '125' [Concomitant]
  5. FLUCONAZOLE [Concomitant]
  6. NIACIN [Concomitant]
  7. LANTUS [Concomitant]
  8. OMEPRAZOLE [Concomitant]
  9. LISINOPRIL [Concomitant]
  10. HYDROCHLOROTHIAZIDE [Concomitant]
  11. IRON [Concomitant]
  12. GABAPENTIN [Concomitant]
  13. PRIMIDONE [Concomitant]
  14. METHOCARBAMOL [Concomitant]

REACTIONS (4)
  - BLOOD CREATININE INCREASED [None]
  - HYPOPHAGIA [None]
  - LETHARGY [None]
  - MENTAL STATUS CHANGES [None]
